FAERS Safety Report 23811379 (Version 1)
Quarter: 2024Q2

REPORT INFORMATION
  Report Type: Report from Study
  Country: MX (occurrence: MX)
  Receive Date: 20240503
  Receipt Date: 20240503
  Transmission Date: 20240716
  Serious: Yes (Hospitalization)
  Sender: FDA-Public Use
  Company Number: MX-JNJFOC-20240483351

PATIENT
  Age: 34 Year
  Sex: Female

DRUGS (1)
  1. SIMPONI [Suspect]
     Active Substance: GOLIMUMAB
     Indication: Ankylosing spondylitis
     Route: 058
     Dates: start: 20240124

REACTIONS (5)
  - Premature labour [Recovered/Resolved]
  - Fatigue [Unknown]
  - Somnolence [Unknown]
  - Urinary tract infection [Unknown]
  - Exposure during pregnancy [Not Recovered/Not Resolved]
